FAERS Safety Report 9142337 (Version 2)
Quarter: 2013Q1

REPORT INFORMATION
  Report Type: Spontaneous
  Country: US (occurrence: US)
  Receive Date: 20130306
  Receipt Date: 20130318
  Transmission Date: 20140127
  Serious: No
  Sender: FDA-Public Use
  Company Number: US-009507513-1303USA001287

PATIENT
  Age: 56 None
  Sex: Male

DRUGS (2)
  1. PEGINTRON [Suspect]
     Indication: VIRAL HEPATITIS CARRIER
     Dosage: 150 MCG/ 0.5 ML, QW
     Route: 058
     Dates: start: 201302
  2. RIBAVIRIN [Suspect]

REACTIONS (5)
  - Injection site bruising [Not Recovered/Not Resolved]
  - Injection site erythema [Not Recovered/Not Resolved]
  - Injection site pruritus [Not Recovered/Not Resolved]
  - Injection site mass [Not Recovered/Not Resolved]
  - Cellulitis [Not Recovered/Not Resolved]
